FAERS Safety Report 7286787-1 (Version None)
Quarter: 2011Q1

REPORT INFORMATION
  Report Type: 
  Country: None (occurrence: None)
  Receive Date: 20110210
  Receipt Date: 20110130
  Transmission Date: 20110831
  Serious: Yes (Death)
  Sender: FDA-Public Use
  Company Number: FR-MERCK-1101FRA00149

PATIENT
  Age: 77 Year
  Sex: Male
  Weight: 94 kg

DRUGS (2)
  1. JANUVIA [Suspect]
     Indication: TYPE 2 DIABETES MELLITUS
     Route: 048
     Dates: start: 20091019, end: 20100315
  2. ACARBOSE [Concomitant]
     Indication: TYPE 2 DIABETES MELLITUS
     Route: 048
     Dates: start: 20090801

REACTIONS (1)
  - CEREBROVASCULAR ACCIDENT [None]
